FAERS Safety Report 8355896-8 (Version None)
Quarter: 2012Q2

REPORT INFORMATION
  Report Type: 
  Country: None (occurrence: None)
  Receive Date: 20120511
  Receipt Date: 20120511
  Transmission Date: 20120825
  Serious: Yes (Other)
  Sender: FDA-Public Use
  Company Number: None

PATIENT
  Sex: Female

DRUGS (2)
  1. GOLYTELY [Suspect]
     Indication: COLONOSCOPY
     Dosage: 4000 ML PO
     Route: 048
     Dates: start: 20120422, end: 20120422
  2. GOLYTELY [Suspect]
     Indication: BOWEL PREPARATION
     Dosage: 4000 ML PO
     Route: 048
     Dates: start: 20120422, end: 20120422

REACTIONS (2)
  - ANGIOEDEMA [None]
  - HYPERSENSITIVITY [None]
